FAERS Safety Report 7591024-4 (Version None)
Quarter: 2011Q3

REPORT INFORMATION
  Report Type: 
  Country: None (occurrence: None)
  Receive Date: 20110705
  Receipt Date: 20110627
  Transmission Date: 20111222
  Serious: Yes (Disabling, Other)
  Sender: FDA-Public Use
  Company Number: GB-PFIZER INC-2011021435

PATIENT
  Age: 68 Year
  Sex: Female
  Weight: 71 kg

DRUGS (1)
  1. EXEMESTANE [Suspect]
     Indication: BREAST CANCER
     Dosage: 25 MG, UNK
     Route: 048
     Dates: start: 20101107, end: 20101129

REACTIONS (3)
  - ERYTHEMA MULTIFORME [None]
  - MALAISE [None]
  - RASH GENERALISED [None]
